FAERS Safety Report 4371433-7 (Version None)
Quarter: 2004Q2

REPORT INFORMATION
  Report Type: 
  Country: None (occurrence: None)
  Receive Date: 20040607
  Receipt Date: 20040115
  Transmission Date: 20050107
  Serious: Yes (Hospitalization)
  Sender: FDA-Public Use
  Company Number: PHNU2004DE00547

PATIENT
  Age: 4 Year
  Sex: Male
  Weight: 14 kg

DRUGS (6)
  1. SANDIMMUNE [Suspect]
     Indication: COLITIS ULCERATIVE
     Dosage: 50 NG, QD
     Route: 042
     Dates: start: 20040112
  2. SANDIMMUNE [Suspect]
     Dosage: 2 MG/KG/DAILY
     Route: 042
  3. CORTISONE [Concomitant]
     Indication: COLITIS ULCERATIVE
     Dosage: 60 MG, QD
  4. FORTUM [Concomitant]
     Indication: COLITIS ULCERATIVE
     Dosage: 850 MG, TID
     Route: 042
     Dates: start: 20040108
  5. CLONT [Concomitant]
     Indication: COLITIS ULCERATIVE
     Dosage: 90 MG, QID
     Route: 042
     Dates: start: 20040112
  6. SOLU-DECORTIN-H [Concomitant]
     Dosage: 20 MG, BID
     Dates: start: 20040108

REACTIONS (6)
  - COMPUTERISED TOMOGRAM ABNORMAL [None]
  - CONVULSION [None]
  - DEPRESSED LEVEL OF CONSCIOUSNESS [None]
  - HYPOPNOEA [None]
  - NEUROTOXICITY [None]
  - STATUS EPILEPTICUS [None]
